FAERS Safety Report 8560079-2 (Version None)
Quarter: 2012Q3

REPORT INFORMATION
  Report Type: 
  Country: None (occurrence: None)
  Receive Date: 20120802
  Receipt Date: 20120723
  Transmission Date: 20120928
  Serious: Yes (Hospitalization, Other)
  Sender: FDA-Public Use
  Company Number: US-009507513-2010SP004036

PATIENT

DRUGS (2)
  1. NUVARING [Suspect]
     Dates: start: 20061201
  2. NUVARING [Suspect]
     Indication: CONTRACEPTION
     Dates: start: 20071201, end: 20080101

REACTIONS (7)
  - PULMONARY EMBOLISM [None]
  - GONORRHOEA [None]
  - MICROCYTIC ANAEMIA [None]
  - UNINTENDED PREGNANCY [None]
  - INITIAL INSOMNIA [None]
  - MATERNAL EXPOSURE DURING PREGNANCY [None]
  - PLEURISY [None]
